FAERS Safety Report 5838619-3 (Version None)
Quarter: 2008Q3

REPORT INFORMATION
  Report Type: 
  Country: None (occurrence: None)
  Receive Date: 20080808
  Receipt Date: 20080609
  Transmission Date: 20090109
  Serious: No
  Sender: FDA-Public Use
  Company Number: A0731981A

PATIENT
  Age: 59 Year
  Sex: Female

DRUGS (6)
  1. ALTABAX [Suspect]
     Route: 061
     Dates: start: 20080605
  2. NEXIUM [Concomitant]
  3. CHOLESTEROL REDUCING AGENT [Concomitant]
  4. WELLBUTRIN [Concomitant]
  5. ACTIFED COMPOUND [Concomitant]
  6. BACTRIM [Concomitant]

REACTIONS (5)
  - BLISTER [None]
  - PAIN [None]
  - PARAESTHESIA [None]
  - RASH [None]
  - URTICARIA [None]
